FAERS Safety Report 10477247 (Version 1)
Quarter: 2014Q3

REPORT INFORMATION
  Report Type: Spontaneous
  Country: JP (occurrence: JP)
  Receive Date: 20140926
  Receipt Date: 20140926
  Transmission Date: 20150326
  Serious: Yes (Other)
  Sender: FDA-Public Use
  Company Number: JP-PFIZER INC-2014261611

PATIENT
  Sex: Male

DRUGS (1)
  1. LYRICA [Suspect]
     Active Substance: PREGABALIN
     Dosage: UNK, TWICE DAILY
     Route: 048

REACTIONS (4)
  - Migraine [Unknown]
  - Epistaxis [Unknown]
  - Road traffic accident [Unknown]
  - Haematemesis [Unknown]

NARRATIVE: CASE EVENT DATE: 201409
